FAERS Safety Report 9550206 (Version 2)
Quarter: 2013Q4

REPORT INFORMATION
  Report Type: Report from Study
  Country: US (occurrence: US)
  Receive Date: 20130924
  Receipt Date: 20131101
  Transmission Date: 20140711
  Serious: Yes (Other)
  Sender: FDA-Public Use
  Company Number: PHEH2013US019690

PATIENT
  Sex: Female
  Weight: 74.39 kg

DRUGS (5)
  1. GILENYA [Suspect]
     Indication: MULTIPLE SCLEROSIS
     Dosage: 0.5 MG, QD
     Route: 048
     Dates: start: 20130730
  2. CELEXA [Concomitant]
     Dosage: 20 MG, UNK
     Route: 048
  3. VIT D3 [Concomitant]
     Dosage: 3000 U, UNK
     Route: 048
  4. WELLBUTRIN [Concomitant]
     Dosage: 150 MG, UNK
     Route: 048
  5. KLONOPIN [Concomitant]
     Dosage: 0.5 MG, QHS
     Route: 048

REACTIONS (4)
  - Electrocardiogram T wave inversion [Unknown]
  - Concomitant disease aggravated [Unknown]
  - Electrocardiogram PR prolongation [Unknown]
  - Heart rate decreased [Unknown]
